FAERS Safety Report 10727715 (Version 5)
Quarter: 2015Q3

REPORT INFORMATION
  Report Type: Spontaneous
  Country: US (occurrence: US)
  Receive Date: 20150121
  Receipt Date: 20150724
  Transmission Date: 20151125
  Serious: Yes (Hospitalization, Congenital Anomaly, Other)
  Sender: FDA-Public Use
  Company Number: US-APOTEX-2015AP005286

PATIENT
  Age: 0 Day
  Sex: Male

DRUGS (1)
  1. PAXIL [Suspect]
     Active Substance: PAROXETINE HYDROCHLORIDE
     Indication: DEPRESSION
     Dosage: 10 MG, 20 MG AND 40 MG QD TABLET INTERMITTENTLY
     Route: 064
     Dates: start: 19990531, end: 2000

REACTIONS (6)
  - Talipes [Unknown]
  - Foetal exposure during pregnancy [Unknown]
  - Congenital Eustachian tube anomaly [Unknown]
  - Foetal distress syndrome [Unknown]
  - Otitis media acute [Unknown]
  - Conduct disorder [Unknown]

NARRATIVE: CASE EVENT DATE: 20000204
